FAERS Safety Report 8094305-3 (Version None)
Quarter: 2012Q1

REPORT INFORMATION
  Report Type: 
  Country: None (occurrence: None)
  Receive Date: 20120130
  Receipt Date: 20120124
  Transmission Date: 20120608
  Serious: No
  Sender: FDA-Public Use
  Company Number: US-PFIZER INC-2012020781

PATIENT
  Sex: Male
  Weight: 79.4 kg

DRUGS (2)
  1. VIAGRA [Suspect]
     Dosage: 150 MG, AS NEEDED
  2. VIAGRA [Suspect]
     Indication: ERECTILE DYSFUNCTION
     Dosage: 100 MG, AS NEEDED
     Dates: start: 20110102

REACTIONS (1)
  - MICTURITION DISORDER [None]
